FAERS Safety Report 9253936 (Version 1)
Quarter: 2013Q2

REPORT INFORMATION
  Report Type: Spontaneous
  Country: US (occurrence: US)
  Receive Date: 20130425
  Receipt Date: 20130425
  Transmission Date: 20140414
  Serious: Yes (Other)
  Sender: FDA-Public Use
  Company Number: US-BAYER-2013-051472

PATIENT
  Age: 36 Year
  Sex: Female

DRUGS (4)
  1. YASMIN [Suspect]
     Indication: MENSTRUAL CYCLE MANAGEMENT
  2. LYRICA [Concomitant]
  3. PROZAC [Concomitant]
     Dosage: 20 MG, DAILY
  4. PERCOCET [Concomitant]

REACTIONS (1)
  - Pulmonary embolism [Recovered/Resolved]
